FAERS Safety Report 7995559-1 (Version None)
Quarter: 2011Q4

REPORT INFORMATION
  Report Type: 
  Country: None (occurrence: None)
  Receive Date: 20111220
  Receipt Date: 20111214
  Transmission Date: 20120403
  Serious: Yes (Hospitalization)
  Sender: FDA-Public Use
  Company Number: US-ABBOTT-11P-163-0872157-00

PATIENT
  Sex: Female
  Weight: 77.18 kg

DRUGS (21)
  1. METHOTREXATE [Concomitant]
     Indication: RHEUMATOID ARTHRITIS
  2. PREDNISONE TAB [Concomitant]
     Indication: RHEUMATOID ARTHRITIS
  3. ZANAFLEX [Concomitant]
     Indication: FIBROMYALGIA
  4. HUMIRA [Suspect]
     Indication: RHEUMATOID ARTHRITIS
     Dates: start: 20070101
  5. NEXIUM [Concomitant]
     Indication: GASTROOESOPHAGEAL REFLUX DISEASE
     Route: 048
  6. VICODIN [Concomitant]
     Indication: RHEUMATOID ARTHRITIS
     Dosage: 5-500 MG  - 1-2 EVERY 4-6 HOURS, PRN
     Route: 048
  7. PREMARIN [Concomitant]
     Indication: HORMONE REPLACEMENT THERAPY
  8. PRAVASTATIN [Concomitant]
     Indication: HYPERLIPIDAEMIA
     Dosage: ONE DAILY, AT BEDTIME
     Route: 048
  9. XANAX [Concomitant]
     Indication: ANXIETY
     Route: 048
  10. FOLIC ACID [Concomitant]
     Indication: VITAMIN SUPPLEMENTATION
  11. MYSOLINE [Concomitant]
     Indication: TREMOR
     Dosage: AT BEDTIME
     Route: 048
  12. CENTRUM SILVER [Concomitant]
     Indication: VITAMIN SUPPLEMENTATION
  13. ZYRTEC [Concomitant]
     Indication: HYPERSENSITIVITY
     Route: 048
  14. PREDNISONE TAB [Concomitant]
  15. FLONASE [Concomitant]
     Indication: HYPERSENSITIVITY
     Dosage: ACT SUSP. / 2 SPRAY/ NOSTRIL, ONCE DAILY
  16. FIBER THERAPY [Concomitant]
     Indication: CONSTIPATION PROPHYLAXIS
  17. SYNTHROID [Concomitant]
     Indication: HYPOTHYROIDISM
  18. ADVAIR DISKUS 100/50 [Concomitant]
     Indication: CHRONIC OBSTRUCTIVE PULMONARY DISEASE
     Dosage: 100-50 MCG/DOSE
  19. PREDNISONE TAB [Concomitant]
  20. BETAMETHASONE [Concomitant]
     Indication: EAR DISORDER
     Dosage: 2 IN 1 DAY, EACH EAR AS NEEDED
  21. COMBIVENT [Concomitant]
     Indication: CHRONIC OBSTRUCTIVE PULMONARY DISEASE

REACTIONS (16)
  - RHINITIS ALLERGIC [None]
  - HEADACHE [None]
  - CORONARY ARTERY DISEASE [None]
  - FIBROMYALGIA [None]
  - DERMOID CYST [None]
  - CHEST PAIN [None]
  - MYOCARDIAL INFARCTION [None]
  - MUSCULOSKELETAL PAIN [None]
  - MOBILITY DECREASED [None]
  - ACTINIC KERATOSIS [None]
  - PYURIA [None]
  - BLOOD PRESSURE INCREASED [None]
  - OEDEMA PERIPHERAL [None]
  - SEBORRHOEIC KERATOSIS [None]
  - HYPOAESTHESIA [None]
  - ASTHENIA [None]
